FAERS Safety Report 7356625-7 (Version None)
Quarter: 2011Q1

REPORT INFORMATION
  Report Type: 
  Country: None (occurrence: None)
  Receive Date: 20110316
  Receipt Date: 20110304
  Transmission Date: 20110831
  Serious: Yes (Hospitalization)
  Sender: FDA-Public Use
  Company Number: PHHY2010BR63320

PATIENT
  Sex: Male

DRUGS (1)
  1. FORASEQ [Suspect]

REACTIONS (2)
  - DYSPNOEA [None]
  - LUNG DISORDER [None]
